FAERS Safety Report 19777044 (Version 2)
Quarter: 2021Q4

REPORT INFORMATION
  Report Type: Report from Study
  Country: CA (occurrence: CA)
  Receive Date: 20210902
  Receipt Date: 20211206
  Transmission Date: 20220303
  Serious: Yes (Hospitalization, Other)
  Sender: FDA-Public Use
  Company Number: CA-ABBVIE-21K-028-4061327-00

PATIENT
  Sex: Male

DRUGS (10)
  1. SKYRIZI [Suspect]
     Active Substance: RISANKIZUMAB-RZAA
     Indication: Psoriasis
     Route: 058
     Dates: start: 20191219
  2. AMITRIPTYLINE [Concomitant]
     Active Substance: AMITRIPTYLINE
     Indication: Product used for unknown indication
     Route: 065
  3. ROSUVASTATIN [Concomitant]
     Active Substance: ROSUVASTATIN
     Indication: Product used for unknown indication
     Route: 065
  4. PANTOPRAZOLE [Concomitant]
     Active Substance: PANTOPRAZOLE
     Indication: Product used for unknown indication
     Route: 065
  5. ZOPICLONE [Concomitant]
     Active Substance: ZOPICLONE
     Indication: Product used for unknown indication
     Route: 065
  6. AMOXICILLIN\CLAVULANATE POTASSIUM [Concomitant]
     Active Substance: AMOXICILLIN\CLAVULANATE POTASSIUM
     Indication: Product used for unknown indication
     Dosage: 500/125MG
     Route: 065
     Dates: start: 20210624
  7. ACITRETIN [Concomitant]
     Active Substance: ACITRETIN
     Indication: Product used for unknown indication
     Route: 065
  8. SPIRIVA RESPIMAT [Concomitant]
     Active Substance: TIOTROPIUM BROMIDE
     Indication: Product used for unknown indication
     Route: 065
  9. COVID-19 MRNA VACCINE [Concomitant]
     Indication: COVID-19 immunisation
     Route: 030
     Dates: start: 20210531, end: 20210531
  10. COVID-19 MRNA VACCINE [Concomitant]
     Route: 030
     Dates: start: 20210714, end: 20210714

REACTIONS (11)
  - Colitis ischaemic [Not Recovered/Not Resolved]
  - Haemorrhage [Recovering/Resolving]
  - Gastric infarction [Recovering/Resolving]
  - Nail discolouration [Not Recovered/Not Resolved]
  - Dry skin [Not Recovered/Not Resolved]
  - Gastrointestinal disorder [Recovering/Resolving]
  - Mesenteric vascular insufficiency [Recovering/Resolving]
  - Functional gastrointestinal disorder [Recovering/Resolving]
  - Skin fissures [Not Recovered/Not Resolved]
  - Rash [Unknown]
  - Therapeutic response shortened [Unknown]

NARRATIVE: CASE EVENT DATE: 20210101
